FAERS Safety Report 13039235 (Version 1)
Quarter: 2016Q4

REPORT INFORMATION
  Report Type: Spontaneous
  Country: JP (occurrence: JP)
  Receive Date: 20161219
  Receipt Date: 20161219
  Transmission Date: 20170207
  Serious: Yes (Hospitalization)
  Sender: FDA-Public Use
  Company Number: PHJP2016JP033386

PATIENT
  Age: 40 Year
  Sex: Female

DRUGS (2)
  1. SLOW-K TAB [Suspect]
     Active Substance: POTASSIUM CHLORIDE
     Dosage: 6000 MG, UNK
     Route: 048
  2. SLOW-K TAB [Suspect]
     Active Substance: POTASSIUM CHLORIDE
     Indication: BLOOD POTASSIUM DECREASED
     Dosage: UNK
     Route: 048

REACTIONS (2)
  - Blood potassium decreased [Unknown]
  - Alopecia [Unknown]
